FAERS Safety Report 12238461 (Version 2)
Quarter: 2016Q2

REPORT INFORMATION
  Report Type: Spontaneous
  Country: JP (occurrence: JP)
  Receive Date: 20160405
  Receipt Date: 20160407
  Transmission Date: 20160815
  Serious: Yes (Other)
  Sender: FDA-Public Use
  Company Number: JP-009507513-1602JPN000920

PATIENT
  Age: 4 Decade
  Sex: Male

DRUGS (7)
  1. LEXIVA [Suspect]
     Active Substance: FOSAMPRENAVIR CALCIUM
     Indication: HIV INFECTION
     Dosage: 700 MG, BID
     Route: 048
     Dates: start: 200911, end: 201206
  2. STOCRIN TABLETS 600MG [Suspect]
     Active Substance: EFAVIRENZ
     Indication: HIV INFECTION
     Dosage: 600 MG, QD
     Route: 048
     Dates: start: 200809, end: 200911
  3. ISENTRESS [Suspect]
     Active Substance: RALTEGRAVIR POTASSIUM
     Indication: HIV INFECTION
     Dosage: 400 MG, BID
     Route: 048
     Dates: start: 201206
  4. SULFAMETHOXAZOLE (+) TRIMETHOPRIM [Concomitant]
     Active Substance: SULFAMETHOXAZOLE\TRIMETHOPRIM
     Indication: PNEUMOCYSTIS JIROVECII PNEUMONIA
     Dosage: DAILY DOSE UNKNOWN
     Route: 048
     Dates: start: 2008
  5. REYATAZ [Suspect]
     Active Substance: ATAZANAVIR SULFATE
     Indication: HIV INFECTION
     Dosage: DAILY DOSE UNKNOWN
     Route: 048
     Dates: start: 200911, end: 201206
  6. TRUVADA [Suspect]
     Active Substance: EMTRICITABINE\TENOFOVIR DISOPROXIL FUMARATE
     Indication: HIV INFECTION
     Dosage: 1 TABLET, QD
     Route: 048
     Dates: start: 200809
  7. NORVIR [Suspect]
     Active Substance: RITONAVIR
     Indication: HIV INFECTION
     Dosage: 100 MG, BID
     Route: 048
     Dates: start: 200911, end: 201206

REACTIONS (6)
  - Weight increased [Unknown]
  - Dyslipidaemia [Unknown]
  - Blood glucose increased [Unknown]
  - Liver disorder [Recovered/Resolved]
  - Type 1 diabetes mellitus [Not Recovered/Not Resolved]
  - Drug eruption [Recovered/Resolved]

NARRATIVE: CASE EVENT DATE: 200911
